FAERS Safety Report 8487751-7 (Version None)
Quarter: 2012Q3

REPORT INFORMATION
  Report Type: 
  Country: None (occurrence: None)
  Receive Date: 20120705
  Receipt Date: 20120626
  Transmission Date: 20120928
  Serious: Yes (Hospitalization)
  Sender: FDA-Public Use
  Company Number: US-BAYER-2012-037950

PATIENT
  Age: 18 Year
  Sex: Female
  Weight: 77.098 kg

DRUGS (2)
  1. YAZ [Suspect]
     Indication: MENSTRUAL CYCLE MANAGEMENT
     Dosage: UNK
     Dates: start: 20070101, end: 20070201
  2. YASMIN [Suspect]
     Dosage: UNK

REACTIONS (11)
  - DEPRESSION [None]
  - NECK PAIN [None]
  - NERVOUSNESS [None]
  - DYSPNOEA [None]
  - PULMONARY EMBOLISM [None]
  - INJURY [None]
  - EMOTIONAL DISTRESS [None]
  - PAIN [None]
  - CHEST PAIN [None]
  - FEAR OF DEATH [None]
  - HEADACHE [None]
